FAERS Safety Report 17206596 (Version 1)
Quarter: 2019Q4

REPORT INFORMATION
  Report Type: Spontaneous
  Country: US (occurrence: US)
  Receive Date: 20191227
  Receipt Date: 20191227
  Transmission Date: 20200122
  Serious: Yes (Other)
  Sender: FDA-Public Use
  Company Number: US-ALKEM LABORATORIES LIMITED-US-ALKEM-2018-10790

PATIENT
  Age: 6 Year
  Sex: Female

DRUGS (1)
  1. MYCOPHENOLATE MOFETIL. [Suspect]
     Active Substance: MYCOPHENOLATE MOFETIL
     Indication: OCULAR DISCOMFORT
     Dosage: 600 MG/M2, BID
     Route: 065

REACTIONS (2)
  - Disease progression [Unknown]
  - Conjunctivitis [Unknown]
